FAERS Safety Report 13579164 (Version 5)
Quarter: 2017Q3

REPORT INFORMATION
  Report Type: Spontaneous
  Country: US (occurrence: US)
  Receive Date: 20170524
  Receipt Date: 20170822
  Transmission Date: 20171127
  Serious: No
  Sender: FDA-Public Use
  Company Number: US-BRISTOL-MYERS SQUIBB COMPANY-BMS-2017-044816

PATIENT
  Sex: Female
  Weight: 64.4 kg

DRUGS (3)
  1. KENALOG-10 [Suspect]
     Active Substance: TRIAMCINOLONE ACETONIDE
     Indication: TRIGGER FINGER
     Dosage: 20 MG, QD
     Route: 065
     Dates: start: 20170301, end: 20170301
  2. KENALOG-10 [Suspect]
     Active Substance: TRIAMCINOLONE ACETONIDE
     Indication: TENDONITIS
     Route: 065
  3. LIDOCAINE. [Suspect]
     Active Substance: LIDOCAINE
     Indication: ANAESTHESIA
     Dosage: UNK, QD
     Route: 065
     Dates: start: 20170103, end: 20170103

REACTIONS (2)
  - Adverse drug reaction [Unknown]
  - Alopecia [Not Recovered/Not Resolved]
